FAERS Safety Report 9659820 (Version 1)
Quarter: 2013Q4

REPORT INFORMATION
  Report Type: Spontaneous
  Country: JP (occurrence: JP)
  Receive Date: 20131031
  Receipt Date: 20131031
  Transmission Date: 20140711
  Serious: Yes (Other)
  Sender: FDA-Public Use
  Company Number: JP-PFIZER INC-2013309876

PATIENT
  Age: 70 Year
  Sex: Male

DRUGS (2)
  1. CAMPTO [Suspect]
     Indication: COLON CANCER
     Dosage: UNK, ONCE A DAY
     Route: 041
  2. TS-1 [Concomitant]
     Dosage: TOTAL 2 CYCLES

REACTIONS (3)
  - Pneumocystis jirovecii pneumonia [Unknown]
  - Pneumothorax [Unknown]
  - Pneumonia bacterial [Unknown]
